FAERS Safety Report 15551297 (Version 1)
Quarter: 2018Q4

REPORT INFORMATION
  Report Type: Spontaneous
  Country: US (occurrence: US)
  Receive Date: 20181025
  Receipt Date: 20181025
  Transmission Date: 20190205
  Serious: Yes (Hospitalization)
  Sender: FDA-Public Use
  Company Number: US-PFIZER INC-2018427978

PATIENT
  Age: 81 Year
  Sex: Female
  Weight: 57.61 kg

DRUGS (3)
  1. IBRANCE [Suspect]
     Active Substance: PALBOCICLIB
     Indication: BREAST CANCER METASTATIC
     Dosage: 125 MG, CYCLIC (ONCE DAILY, 21 DAYS ON, 7 DAYS OFF)
     Route: 048
  2. EXTAVIA [Concomitant]
     Active Substance: INTERFERON BETA-1B
     Dosage: UNK UNK, MONTHLY
  3. FEMARA [Concomitant]
     Active Substance: LETROZOLE
     Indication: BREAST CANCER METASTATIC
     Dosage: 2.5 MG, DAILY
     Route: 048

REACTIONS (8)
  - Oral pain [Unknown]
  - Malaise [Unknown]
  - Neutropenia [Unknown]
  - Candida infection [Recovering/Resolving]
  - Dehydration [Unknown]
  - Mouth haemorrhage [Unknown]
  - Mouth ulceration [Unknown]
  - Angular cheilitis [Unknown]

NARRATIVE: CASE EVENT DATE: 20181004
